FAERS Safety Report 9241864 (Version 1)
Quarter: 2013Q2

REPORT INFORMATION
  Report Type: Spontaneous
  Country: KR (occurrence: KR)
  Receive Date: 20130419
  Receipt Date: 20130419
  Transmission Date: 20140414
  Serious: Yes (Other)
  Sender: FDA-Public Use
  Company Number: KR-JNJFOC-20130407400

PATIENT
  Age: 47 Year
  Sex: Male

DRUGS (1)
  1. NICORETTE COOLMINT 2MG [Suspect]
     Indication: PRODUCT USED FOR UNKNOWN INDICATION
     Dosage: USING FOR 16 MONTHS.
     Route: 048

REACTIONS (2)
  - Nicotine dependence [Not Recovered/Not Resolved]
  - Intentional drug misuse [Unknown]
